FAERS Safety Report 16198698 (Version 1)
Quarter: 2019Q2

REPORT INFORMATION
  Report Type: Spontaneous
  Country: DK (occurrence: DK)
  Receive Date: 20190415
  Receipt Date: 20190415
  Transmission Date: 20190711
  Serious: Yes (Hospitalization)
  Sender: FDA-Public Use
  Company Number: DK-UCBSA-2019014361

PATIENT
  Age: 58 Year
  Sex: Male

DRUGS (12)
  1. STALEVO [Concomitant]
     Active Substance: CARBIDOPA\ENTACAPONE\LEVODOPA
     Indication: PARKINSON^S DISEASE
     Dosage: 7DF DAILY STRENGTH: 200+50+200 MG.
     Route: 048
     Dates: start: 20181127
  2. OXAZEPAM. [Concomitant]
     Active Substance: OXAZEPAM
     Indication: ANXIETY
     Dosage: STRENGTH: 15 MG. DOSE: 2JAN-9JAN2019 15 MG X 1 DAILY. FROM 13FEB2019 7.5 MG PN (MAX 1 X DAILY
     Route: 048
  3. MAGNESIUM HYDROXIDE. [Concomitant]
     Active Substance: MAGNESIUM HYDROXIDE
     Indication: CONSTIPATION
     Dosage: 2G DAILY STRENGHT: 500 MG.
     Route: 048
     Dates: start: 20160718
  4. DULOXETINE. [Concomitant]
     Active Substance: DULOXETINE
     Indication: NEURALGIA
     Dosage: STRENGTH: 30 MG DOSE: 1 PERIOD 60 MG X 1 DAILY, 2 PERIOD 30 MG X 1 DAILY.
     Route: 048
     Dates: start: 20180319, end: 20181114
  5. NEUPRO [Suspect]
     Active Substance: ROTIGOTINE
     Dosage: STRENGTH: 8 MG/24 HOURS
     Route: 003
  6. SILDENAFIL. [Concomitant]
     Active Substance: SILDENAFIL
     Indication: ERECTILE DYSFUNCTION
     Dosage: 100 MG, AS NEEDED (PRN) STRENGTH: 100 MG DOSE: 1 TABLET WHEN NECESSARY, NO MORE THAN ONCE A DAY
     Route: 048
     Dates: start: 20180413, end: 201903
  7. B-COMBIN [Concomitant]
     Indication: VITAMIN SUPPLEMENTATION
     Dosage: 1 DF DAILY
     Route: 048
     Dates: start: 20170816
  8. ENALAPRIL W/HYDROCHLOROTHIAZIDE [Concomitant]
     Active Substance: ENALAPRIL\HYDROCHLOROTHIAZIDE
     Indication: HYPERTENSION
     Dosage: 1DF DAILY STRENGTH: 20+12.5 MG.
     Route: 048
     Dates: start: 20140620, end: 20181004
  9. NEUPRO [Suspect]
     Active Substance: ROTIGOTINE
     Indication: PARKINSONISM
     Dosage: UNK
     Dates: start: 20171024, end: 2018
  10. MORPHINE [Concomitant]
     Active Substance: MORPHINE
     Indication: PAIN
     Dosage: 20MG DAILY STRENGTH: 10 MG.
     Route: 048
     Dates: start: 20190306
  11. MOVICOL [Concomitant]
     Active Substance: POLYETHYLENE GLYCOL 3350\POTASSIUM CHLORIDE\SODIUM BICARBONATE\SODIUM CHLORIDE
     Indication: CONSTIPATION
     Dosage: 1 DF DAILY
     Route: 048
     Dates: start: 20180807
  12. PARACETAMOL [Concomitant]
     Active Substance: ACETAMINOPHEN
     Indication: PAIN
     Dosage: 4G DAILY; STRENGTH: 500 MG.
     Route: 048
     Dates: start: 20190306

REACTIONS (4)
  - Mania [Recovered/Resolved]
  - Libido increased [Recovered/Resolved]
  - Psychomotor hyperactivity [Recovered/Resolved]
  - Insomnia [Recovered/Resolved]

NARRATIVE: CASE EVENT DATE: 201809
